FAERS Safety Report 11410261 (Version 1)
Quarter: 2015Q3

REPORT INFORMATION
  Report Type: Spontaneous
  Country: US (occurrence: US)
  Receive Date: 20150824
  Receipt Date: 20150824
  Transmission Date: 20151125
  Serious: Yes (Other)
  Sender: FDA-Public Use
  Company Number: PHHY2015US098946

PATIENT
  Age: 55 Year
  Sex: Male

DRUGS (2)
  1. CHLORDIAZEPOXIDE [Suspect]
     Active Substance: CHLORDIAZEPOXIDE
     Indication: ALCOHOL WITHDRAWAL SYNDROME
     Dosage: 300 MG, UNK
     Route: 065
  2. LACTULOSE. [Concomitant]
     Active Substance: LACTULOSE
     Indication: HEPATIC ENCEPHALOPATHY
     Route: 065

REACTIONS (2)
  - Overdose [Unknown]
  - Hepatic encephalopathy [Recovered/Resolved]
